FAERS Safety Report 9036340 (Version 1)
Quarter: 2013Q1

REPORT INFORMATION
  Report Type: Report from Study
  Country: US (occurrence: US)
  Receive Date: 20130129
  Receipt Date: 20130129
  Transmission Date: 20140127
  Serious: No
  Sender: FDA-Public Use
  Company Number: US-ABBOTT-12P-163-0892830-00

PATIENT
  Age: 27 Year
  Sex: Female

DRUGS (8)
  1. HUMIRA 40 MG/0.8 ML PEN [Suspect]
     Indication: CROHN^S DISEASE
     Dosage: LOADING DOSE
     Dates: start: 20111231, end: 20111231
  2. HUMIRA 40 MG/0.8 ML PEN [Suspect]
     Dates: start: 20120115
  3. CYMBALTA [Concomitant]
     Indication: DRUG THERAPY
     Dosage: 2MG IN THE AM AND 1MG IN THE PM
  4. CYMBALTA [Concomitant]
     Indication: PROPHYLAXIS
  5. OMEPRAZOLE [Concomitant]
     Indication: DYSPEPSIA
     Dosage: AS REQUIRED
  6. REMERON [Concomitant]
     Indication: INSOMNIA
     Dosage: EVERY NIGHT
  7. CELEXA [Concomitant]
     Indication: DEPRESSION
  8. VISTARIL [Concomitant]
     Indication: ANXIETY

REACTIONS (4)
  - Injection site pain [Not Recovered/Not Resolved]
  - Wrong technique in drug usage process [Unknown]
  - Incorrect dose administered [Unknown]
  - Headache [Unknown]
